FAERS Safety Report 8124629-2 (Version None)
Quarter: 2012Q1

REPORT INFORMATION
  Report Type: 
  Country: None (occurrence: None)
  Receive Date: 20120209
  Receipt Date: 20120209
  Transmission Date: 20120608
  Serious: No
  Sender: FDA-Public Use
  Company Number: None

PATIENT
  Age: 52 Year
  Sex: Female
  Weight: 54.431 kg

DRUGS (1)
  1. RECLAST [Suspect]
     Indication: OSTEOPOROSIS PROPHYLAXIS
     Route: 041
     Dates: start: 20100305, end: 20100305

REACTIONS (9)
  - BONE LOSS [None]
  - PAIN IN JAW [None]
  - TOOTH DISORDER [None]
  - GINGIVAL BLEEDING [None]
  - JOINT CREPITATION [None]
  - BONE DEFORMITY [None]
  - HEADACHE [None]
  - BURNING SENSATION [None]
  - QUALITY OF LIFE DECREASED [None]
